FAERS Safety Report 16749918 (Version 1)
Quarter: 2019Q3

REPORT INFORMATION
  Report Type: Spontaneous
  Country: FR (occurrence: FR)
  Receive Date: 20190828
  Receipt Date: 20190828
  Transmission Date: 20191005
  Serious: Yes (Hospitalization, Other)
  Sender: FDA-Public Use
  Company Number: FR-FRESENIUS KABI-FK201909418

PATIENT
  Age: 24 Year
  Sex: Female

DRUGS (2)
  1. SALBUTAMOL [Suspect]
     Active Substance: ALBUTEROL
     Indication: PREMATURE LABOUR
     Dosage: UNKNOWN
     Route: 065
  2. INDOMETHACIN (MANUFACTURER UNKNOWN) [Suspect]
     Active Substance: INDOMETHACIN
     Indication: PREMATURE LABOUR
     Dosage: UNKNOWN
     Route: 065

REACTIONS (9)
  - Nosocomial infection [Unknown]
  - Enterobacter infection [Unknown]
  - Abdominal pain [Unknown]
  - Exposure during pregnancy [Unknown]
  - Pyelonephritis acute [Unknown]
  - Staphylococcal infection [Unknown]
  - Amniotic cavity infection [Unknown]
  - Premature delivery [Recovered/Resolved]
  - Abdominal abscess [Recovered/Resolved]
